FAERS Safety Report 17996279 (Version 1)
Quarter: 2020Q3

REPORT INFORMATION
  Report Type: Spontaneous
  Country: IT (occurrence: IT)
  Receive Date: 20200708
  Receipt Date: 20200708
  Transmission Date: 20201103
  Serious: Yes (Death, Other)
  Sender: FDA-Public Use
  Company Number: NVSC2020IT160215

PATIENT
  Age: 69 Year
  Sex: Female

DRUGS (9)
  1. VINCRISTINE [Suspect]
     Active Substance: VINCRISTINE
     Indication: B-CELL LYMPHOMA STAGE IV
     Dosage: 1 DF, CYCLIC(CHOP)
     Route: 065
     Dates: start: 2015, end: 201603
  2. PREDNISONE. [Suspect]
     Active Substance: PREDNISONE
     Indication: B-CELL LYMPHOMA STAGE IV
     Dosage: 1 DF, CYCLIC(CHOP)
     Route: 065
     Dates: start: 2015, end: 201603
  3. RITUXIMAB. [Suspect]
     Active Substance: RITUXIMAB
     Dosage: 375 MG/M2, CYCLIC(BEFORE CYCLE 5 OF CHEMOTHERAPY)
     Route: 065
  4. MIRTAZAPINE. [Suspect]
     Active Substance: MIRTAZAPINE
     Indication: PROGRESSIVE MULTIFOCAL LEUKOENCEPHALOPATHY
     Dosage: 30 MG, QD
     Route: 065
  5. RITUXIMAB. [Suspect]
     Active Substance: RITUXIMAB
     Dosage: 375 MG/M2, CYCLIC(BEFORE CYCLE 2 OF CHEMOTHERAPY)
     Route: 065
  6. ENDOXAN [Suspect]
     Active Substance: CYCLOPHOSPHAMIDE
     Indication: B-CELL LYMPHOMA STAGE IV
     Dosage: 1 DF, CYCLIC(CHOP)
     Route: 065
     Dates: start: 2015, end: 201603
  7. DOXORUBICIN [Suspect]
     Active Substance: DOXORUBICIN
     Indication: B-CELL LYMPHOMA STAGE IV
     Dosage: 1 DF, CYCLIC(CHOP)
     Route: 065
     Dates: start: 2015, end: 201603
  8. RITUXIMAB. [Suspect]
     Active Substance: RITUXIMAB
     Indication: PRODUCT USED FOR UNKNOWN INDICATION
     Dosage: 375 MG/M2, CYCLIC(BEFORE CYCLE 3 OF CHEMOTHERAPY)
     Route: 065
  9. RITUXIMAB. [Suspect]
     Active Substance: RITUXIMAB
     Dosage: 375 MG/M2, CYCLIC(BEFORE CYCLE 1 OF CHEMOTHERAPY)
     Route: 065

REACTIONS (4)
  - Death [Fatal]
  - Product use in unapproved indication [Unknown]
  - Malignant neoplasm progression [Unknown]
  - Progressive multifocal leukoencephalopathy [Fatal]

NARRATIVE: CASE EVENT DATE: 201607
